FAERS Safety Report 15389731 (Version 8)
Quarter: 2020Q2

REPORT INFORMATION
  Report Type: Report from Study
  Country: US (occurrence: US)
  Receive Date: 20180917
  Receipt Date: 20200627
  Transmission Date: 20200713
  Serious: Yes (Other)
  Sender: FDA-Public Use
  Company Number: PHHY2018US098818

PATIENT
  Age: 65 Year
  Sex: Male

DRUGS (3)
  1. AFINITOR [Suspect]
     Active Substance: EVEROLIMUS
     Indication: ANGIOMYOLIPOMA
     Dosage: 7.5 MG, QD
     Route: 048
     Dates: start: 20140625
  2. AFINITOR [Suspect]
     Active Substance: EVEROLIMUS
     Dosage: 10 MG (DOSE BY SPLITTING THE PILLS)
     Route: 048
     Dates: start: 2015
  3. AFINITOR [Suspect]
     Active Substance: EVEROLIMUS
     Dosage: 7.5 MG, QD
     Route: 048
     Dates: start: 20200319

REACTIONS (13)
  - Anxiety [Unknown]
  - Blood creatinine increased [Unknown]
  - Blood cholesterol increased [Unknown]
  - Migraine [Unknown]
  - Wrong technique in product usage process [Unknown]
  - Angiomyolipoma [Unknown]
  - Malignant neoplasm progression [Unknown]
  - Hypoxia [Unknown]
  - White blood cell count decreased [Unknown]
  - Dry eye [Unknown]
  - Blood potassium increased [Unknown]
  - Sleep apnoea syndrome [Unknown]
  - Nausea [Unknown]

NARRATIVE: CASE EVENT DATE: 2015
